FAERS Safety Report 5341932-X (Version None)
Quarter: 2007Q2

REPORT INFORMATION
  Report Type: 
  Country: None (occurrence: None)
  Receive Date: 20070601
  Receipt Date: 20070522
  Transmission Date: 20071010
  Serious: Yes (Other)
  Sender: FDA-Public Use
  Company Number: US-ELI_LILLY_AND_COMPANY-US200705005958

PATIENT
  Sex: Female

DRUGS (2)
  1. FORTEO [Suspect]
     Indication: OSTEOPOROSIS
     Dosage: UNK, UNKNOWN
     Dates: start: 20050101, end: 20070401
  2. SYNTHROID [Concomitant]
     Indication: HYPOTHYROIDISM

REACTIONS (7)
  - ATRIAL FIBRILLATION [None]
  - HEART RATE INCREASED [None]
  - HYPERTHYROIDISM [None]
  - INFLUENZA [None]
  - PAIN [None]
  - PRESYNCOPE [None]
  - THYROID DISORDER [None]
